FAERS Safety Report 23872897 (Version 2)
Quarter: 2024Q2

REPORT INFORMATION
  Report Type: Report from Study
  Country: BR (occurrence: BR)
  Receive Date: 20240520
  Receipt Date: 20240618
  Transmission Date: 20240716
  Serious: Yes (Other)
  Sender: FDA-Public Use
  Company Number: BR-002147023-NVSC2023BR135272

PATIENT
  Age: 63 Year
  Sex: Female

DRUGS (14)
  1. KISQALI [Suspect]
     Active Substance: RIBOCICLIB
     Indication: Breast cancer
     Dosage: UNK
     Route: 065
  2. KISQALI [Suspect]
     Active Substance: RIBOCICLIB
     Dosage: 3 DOSAGE FORM, QD
     Route: 065
  3. KISQALI [Suspect]
     Active Substance: RIBOCICLIB
     Dosage: UNK
     Route: 065
  4. KISQALI [Suspect]
     Active Substance: RIBOCICLIB
     Dosage: 3 DOSAGE FORM
     Route: 065
  5. KISQALI [Suspect]
     Active Substance: RIBOCICLIB
     Dosage: 2 DOSAGE FORM
     Route: 065
  6. KISQALI [Suspect]
     Active Substance: RIBOCICLIB
     Dosage: 2 DOSAGE FORM, QD
     Route: 065
  7. KISQALI [Suspect]
     Active Substance: RIBOCICLIB
     Dosage: 2 DOSAGE FORM, QD
     Route: 065
     Dates: start: 20240506
  8. FULVESTRANT [Concomitant]
     Active Substance: FULVESTRANT
     Indication: Product used for unknown indication
     Dosage: UNK
     Route: 065
  9. TIMOLOL MALEATE [Concomitant]
     Active Substance: TIMOLOL MALEATE
     Indication: Glaucoma
     Dosage: UNK
     Route: 065
  10. CARBOXYMETHYLCELLULOSE SODIUM [Concomitant]
     Active Substance: CARBOXYMETHYLCELLULOSE SODIUM
     Indication: Eye disorder
     Dosage: UNK
     Route: 065
  11. CETROLAC MD [Concomitant]
     Indication: Eye disorder
     Dosage: UNK
     Route: 065
  12. CYLOCORT [Concomitant]
     Indication: Eye disorder
     Dosage: UNK
     Route: 065
  13. RAPILAX [Concomitant]
     Indication: Gastrointestinal disorder
     Dosage: UNK
     Route: 065
  14. DEXASONA [Concomitant]
     Indication: Pruritus
     Dosage: UNK
     Route: 065

REACTIONS (32)
  - Cataract [Recovered/Resolved]
  - Metastases to bone [Recovering/Resolving]
  - Bone cancer [Recovered/Resolved]
  - Decreased immune responsiveness [Recovered/Resolved]
  - Gait disturbance [Unknown]
  - Eating disorder [Unknown]
  - Urine odour abnormal [Unknown]
  - Liver disorder [Recovered/Resolved]
  - Pain [Unknown]
  - Hair growth abnormal [Not Recovered/Not Resolved]
  - Drug resistance [Unknown]
  - Depression [Unknown]
  - Weight decreased [Not Recovered/Not Resolved]
  - Constipation [Not Recovered/Not Resolved]
  - Vomiting [Recovering/Resolving]
  - Asthenia [Unknown]
  - Inappropriate schedule of product administration [Recovered/Resolved]
  - Memory impairment [Not Recovered/Not Resolved]
  - Pruritus [Recovered/Resolved]
  - Arthralgia [Recovering/Resolving]
  - Rib fracture [Unknown]
  - Gastrointestinal disorder [Not Recovered/Not Resolved]
  - Salivary hypersecretion [Recovered/Resolved]
  - Visual impairment [Recovering/Resolving]
  - Eye disorder [Not Recovered/Not Resolved]
  - Skin wrinkling [Unknown]
  - Malaise [Not Recovered/Not Resolved]
  - Nausea [Recovered/Resolved]
  - Fatigue [Unknown]
  - Skin discolouration [Not Recovered/Not Resolved]
  - Dental caries [Not Recovered/Not Resolved]
  - Pruritus [Not Recovered/Not Resolved]

NARRATIVE: CASE EVENT DATE: 20230701
